FAERS Safety Report 20341216 (Version 2)
Quarter: 2022Q1

REPORT INFORMATION
  Report Type: Report from Study
  Country: US (occurrence: None)
  Receive Date: 20220117
  Receipt Date: 20220120
  Transmission Date: 20220424
  Serious: Yes (Hospitalization)
  Sender: FDA-Public Use
  Company Number: US-ROCHE-3000004

PATIENT
  Age: 73 Year
  Sex: Female
  Weight: 63.7 kg

DRUGS (15)
  1. NINTEDANIB [Suspect]
     Active Substance: NINTEDANIB
     Indication: Idiopathic pulmonary fibrosis
     Route: 048
     Dates: start: 202003
  2. AMLODIPINE BESYLATE [Concomitant]
     Active Substance: AMLODIPINE BESYLATE
     Indication: Heart rate irregular
     Dosage: YES
     Route: 048
     Dates: start: 202004
  3. HYDROCHLOROTHIAZIDE [Concomitant]
     Active Substance: HYDROCHLOROTHIAZIDE
     Indication: Hypertension
     Dosage: YES
     Route: 048
     Dates: start: 2011
  4. ATROVENT [Concomitant]
     Active Substance: IPRATROPIUM BROMIDE
     Indication: Seasonal allergy
     Dosage: YES
     Route: 045
     Dates: start: 202103
  5. ALBUTEROL [Concomitant]
     Active Substance: ALBUTEROL
     Indication: Seasonal allergy
     Dosage: YES
     Route: 055
     Dates: start: 202103
  6. ASPIRIN [Concomitant]
     Active Substance: ASPIRIN
     Indication: Cardiovascular event prophylaxis
     Dosage: YES
     Route: 048
     Dates: start: 202011
  7. VITAMIN D3 [Concomitant]
     Active Substance: CHOLECALCIFEROL
     Dosage: DRUG DOSE FIRST ADMINISTERED IS 2000 OTHER ;ONGOING: YES
     Route: 048
     Dates: start: 1995
  8. VITAMIN B12 [Concomitant]
     Active Substance: CYANOCOBALAMIN
     Dosage: YES
     Route: 048
     Dates: start: 2018
  9. OXYGEN [Concomitant]
     Active Substance: OXYGEN
     Indication: Idiopathic pulmonary fibrosis
     Dosage: YES
     Route: 045
     Dates: start: 20200401
  10. FISH OIL [Concomitant]
     Active Substance: FISH OIL
     Dosage: YES
     Route: 048
     Dates: start: 202103
  11. AZELASTINE [Concomitant]
     Active Substance: AZELASTINE
     Indication: Seasonal allergy
     Dosage: YES
     Route: 045
     Dates: start: 202103
  12. CLORAZEPATE DIPOTASSIUM [Concomitant]
     Active Substance: CLORAZEPATE DIPOTASSIUM
     Dosage: YES
     Route: 048
     Dates: start: 2020
  13. ATORVASTATIN [Concomitant]
     Active Substance: ATORVASTATIN
     Indication: Hyperlipidaemia
     Dosage: YES
     Route: 048
     Dates: start: 20210930
  14. AMLODIPINE [Concomitant]
     Active Substance: AMLODIPINE BESYLATE
     Dosage: ONGOING: YES
     Route: 065
     Dates: start: 2020
  15. ASPIRIN [Concomitant]
     Active Substance: ASPIRIN
     Dosage: ONGOING: YES
     Dates: start: 2020

REACTIONS (1)
  - Chest discomfort [Recovered/Resolved]

NARRATIVE: CASE EVENT DATE: 20211231
